FAERS Safety Report 25774278 (Version 1)
Quarter: 2025Q3

REPORT INFORMATION
  Report Type: Spontaneous
  Country: US (occurrence: US)
  Receive Date: 20250908
  Receipt Date: 20250908
  Transmission Date: 20251021
  Serious: Yes (Other)
  Sender: NOVARTIS
  Company Number: US-002147023-NVSC2025US134404

PATIENT
  Sex: Female

DRUGS (1)
  1. IPTACOPAN [Suspect]
     Active Substance: IPTACOPAN
     Indication: Paroxysmal nocturnal haemoglobinuria
     Dosage: 200 MG, BID
     Route: 048

REACTIONS (4)
  - Breakthrough haemolysis [Recovered/Resolved]
  - Dyspnoea [Recovered/Resolved]
  - Fatigue [Recovered/Resolved]
  - Product supply issue [Unknown]
